FAERS Safety Report 7210844-9 (Version None)
Quarter: 2010Q4

REPORT INFORMATION
  Report Type: 
  Country: None (occurrence: None)
  Receive Date: 20101223
  Receipt Date: 20101215
  Transmission Date: 20110411
  Serious: Yes (Hospitalization)
  Sender: FDA-Public Use
  Company Number: AX220-10-0459

PATIENT
  Age: 49 Year
  Sex: Male

DRUGS (2)
  1. ABRAXANE [Suspect]
     Indication: MALIGNANT MELANOMA
  2. BEVACIZUMAB (BEVACIZUMAB) [Suspect]
     Indication: MALIGNANT MELANOMA

REACTIONS (8)
  - CONVULSION [None]
  - DIZZINESS [None]
  - GRANULOCYTE COUNT DECREASED [None]
  - HAEMOGLOBIN DECREASED [None]
  - INFECTION [None]
  - MOANING [None]
  - UNRESPONSIVE TO STIMULI [None]
  - WHITE BLOOD CELL COUNT DECREASED [None]
